FAERS Safety Report 12676924 (Version 1)
Quarter: 2016Q3

REPORT INFORMATION
  Report Type: Spontaneous
  Country: US (occurrence: US)
  Receive Date: 20160823
  Receipt Date: 20160823
  Transmission Date: 20161109
  Serious: No
  Sender: FDA-Public Use
  Company Number: US-TEVA-591016USA

PATIENT
  Sex: Male
  Weight: 40.86 kg

DRUGS (1)
  1. CLONIDINE. [Suspect]
     Active Substance: CLONIDINE
     Route: 061
     Dates: start: 20150501

REACTIONS (3)
  - Application site rash [Unknown]
  - Application site urticaria [Unknown]
  - Drug prescribing error [Unknown]
